FAERS Safety Report 4278400-2 (Version None)
Quarter: 2004Q1

REPORT INFORMATION
  Report Type: 
  Country: None (occurrence: None)
  Receive Date: 20040123
  Receipt Date: 20040102
  Transmission Date: 20041129
  Serious: Yes (Hospitalization)
  Sender: FDA-Public Use
  Company Number: FR-BRISTOL-MYERS SQUIBB COMPANY-12476594

PATIENT
  Age: 42 Year
  Sex: Male

DRUGS (6)
  1. HOLOXAN [Suspect]
     Indication: MULTIPLE MYELOMA
     Route: 042
     Dates: start: 20030825, end: 20030829
  2. UROMITEXAN [Suspect]
     Indication: MULTIPLE MYELOMA
     Route: 042
     Dates: start: 20030825, end: 20030829
  3. ONDANSETRON HCL [Suspect]
     Indication: PREMEDICATION
     Route: 042
     Dates: start: 20030825, end: 20030829
  4. SOLU-MEDROL [Suspect]
     Indication: PREMEDICATION
     Route: 042
     Dates: start: 20030825, end: 20030829
  5. NOVANTRONE [Concomitant]
     Route: 042
     Dates: start: 20030825, end: 20030825
  6. NAVELBINE [Concomitant]
     Route: 042
     Dates: start: 20030825, end: 20030825

REACTIONS (1)
  - CONVULSION [None]
